FAERS Safety Report 5215221-8 (Version None)
Quarter: 2007Q1

REPORT INFORMATION
  Report Type: 
  Country: None (occurrence: None)
  Receive Date: 20070117
  Receipt Date: 20070104
  Transmission Date: 20070707
  Serious: Yes (Other)
  Sender: FDA-Public Use
  Company Number: 234594

PATIENT
  Age: 37 Year
  Sex: Male

DRUGS (9)
  1. XOLAIR [Suspect]
     Indication: ASTHMA
     Dosage: 300 MG, SUBCUTANEOUS
     Route: 058
     Dates: start: 20061214
  2. SERETIDE (FLUTICASONE PROPIONATE, SALMETEROL XINAFOATE) [Concomitant]
  3. ACCOLATE [Concomitant]
  4. MEDROL [Concomitant]
  5. NASONEX [Concomitant]
  6. DUOVENT (FENOTEROL, IPRATROPIUM BROMIDE) [Concomitant]
  7. ATROVENT [Concomitant]
  8. VENTOLIN (ALBUTEROL/ALBUTEROL SULFATE) [Concomitant]
  9. PULMICORT [Concomitant]

REACTIONS (5)
  - ASTHMA [None]
  - EYELID OEDEMA [None]
  - HYPERHIDROSIS [None]
  - RHINITIS ALLERGIC [None]
  - URTICARIA [None]
